FAERS Safety Report 15006944 (Version 2)
Quarter: 2018Q2

REPORT INFORMATION
  Report Type: Report from Study
  Country: MX (occurrence: MX)
  Receive Date: 20180613
  Receipt Date: 20180618
  Transmission Date: 20180711
  Serious: Yes (Life-Threatening, Hospitalization)
  Sender: FDA-Public Use
  Company Number: PHHY2018MX018350

PATIENT
  Age: 70 Year
  Sex: Female
  Weight: 60 kg

DRUGS (5)
  1. GALVUS MET [Suspect]
     Active Substance: METFORMIN HYDROCHLORIDE\VILDAGLIPTIN
     Dosage: 2 DF (METFORMIN 850 MG, VILDAGLIPTIN 50 MG), QD
     Route: 048
     Dates: start: 20180516
  2. GALVUS MET [Suspect]
     Active Substance: METFORMIN HYDROCHLORIDE\VILDAGLIPTIN
     Dosage: 2 DF (METFORMIN 500 MG, VILDAGLIPTIN 50 MG), QD
     Route: 048
     Dates: start: 201712, end: 20180516
  3. EXFORGE HCT [Suspect]
     Active Substance: AMLODIPINE BESYLATE\HYDROCHLOROTHIAZIDE\VALSARTAN
     Dosage: 2 DF ((10/320/25) MG), QD
     Route: 048
     Dates: start: 20180516
  4. EXFORGE HCT [Suspect]
     Active Substance: AMLODIPINE BESYLATE\HYDROCHLOROTHIAZIDE\VALSARTAN
     Indication: HYPERTENSION
     Dosage: 2 DF (10/160/12.5 MG), QD
     Route: 048
     Dates: start: 201712, end: 20180516
  5. GALVUS MET [Suspect]
     Active Substance: METFORMIN HYDROCHLORIDE\VILDAGLIPTIN
     Indication: DIABETES MELLITUS
     Dosage: 1 DF (METFORMIN 850 MG, VILDAGLIPTIN 50 MG), QD
     Route: 048

REACTIONS (10)
  - Blood glucose increased [Recovered/Resolved]
  - Pyrexia [Recovered/Resolved]
  - Incoherent [Recovered/Resolved]
  - Hypertensive crisis [Recovered/Resolved]
  - Blood pressure increased [Unknown]
  - Drug prescribing error [Unknown]
  - Diarrhoea [Recovered/Resolved]
  - Incorrect dose administered [Unknown]
  - Urinary tract infection [Recovered/Resolved]
  - Feeling abnormal [Recovered/Resolved]

NARRATIVE: CASE EVENT DATE: 20180507
